FAERS Safety Report 13867877 (Version 1)
Quarter: 2017Q3

REPORT INFORMATION
  Report Type: Spontaneous
  Country: US (occurrence: US)
  Receive Date: 20170814
  Receipt Date: 20170814
  Transmission Date: 20171127
  Serious: Yes (Hospitalization)
  Sender: FDA-Public Use
  Company Number: US-ALLERGAN-1734343US

PATIENT
  Age: 45 Year
  Sex: Female

DRUGS (1)
  1. BOTOX [Suspect]
     Active Substance: ONABOTULINUMTOXINA
     Indication: IMPAIRED GASTRIC EMPTYING
     Dosage: UNK, SINGLE

REACTIONS (5)
  - Connective tissue disorder [Recovered/Resolved]
  - Mucous membrane disorder [Recovered/Resolved]
  - Scar [Recovered/Resolved]
  - Drug ineffective [Unknown]
  - Off label use [Unknown]
